FAERS Safety Report 23045515 (Version 1)
Quarter: 2023Q4

REPORT INFORMATION
  Report Type: Spontaneous
  Country: FI (occurrence: FI)
  Receive Date: 20231009
  Receipt Date: 20231009
  Transmission Date: 20240110
  Serious: Yes (Hospitalization)
  Sender: FDA-Public Use
  Company Number: None

PATIENT
  Age: 24 Year
  Sex: Female

DRUGS (2)
  1. MIRENA [Suspect]
     Active Substance: LEVONORGESTREL
     Indication: Dysmenorrhoea
     Dosage: 20?G/DAY
     Route: 015
     Dates: start: 20161128
  2. MIRENA [Suspect]
     Active Substance: LEVONORGESTREL
     Indication: Contraception

REACTIONS (3)
  - Pelvic fluid collection [Recovering/Resolving]
  - Pelvic haematoma [Recovering/Resolving]
  - Ectopic pregnancy with contraceptive device [Recovering/Resolving]

NARRATIVE: CASE EVENT DATE: 20230912
